FAERS Safety Report 18569756 (Version 1)
Quarter: 2020Q4

REPORT INFORMATION
  Report Type: Spontaneous
  Country: US (occurrence: US)
  Receive Date: 20201202
  Receipt Date: 20201202
  Transmission Date: 20210114
  Serious: Yes (Other)
  Sender: FDA-Public Use
  Company Number: None

PATIENT
  Age: 33 Year
  Sex: Male

DRUGS (1)
  1. ARISTADA [Suspect]
     Active Substance: ARIPIPRAZOLE LAUROXIL
     Indication: SCHIZOPHRENIA
     Dosage: OTHER FREQUENCY:EVERY SIX WEEKS;?
     Route: 030
     Dates: start: 20200924

REACTIONS (2)
  - Injection site mass [None]
  - Induration [None]

NARRATIVE: CASE EVENT DATE: 20200924
